FAERS Safety Report 8115500-0 (Version None)
Quarter: 2012Q1

REPORT INFORMATION
  Report Type: 
  Country: None (occurrence: None)
  Receive Date: 20120206
  Receipt Date: 20120201
  Transmission Date: 20120608
  Serious: No
  Sender: FDA-Public Use
  Company Number: US-PFIZER INC-2012016321

PATIENT
  Sex: Female
  Weight: 66.667 kg

DRUGS (6)
  1. LIPITOR [Suspect]
     Indication: BLOOD CHOLESTEROL ABNORMAL
     Dosage: 80 MG, 1X/DAY (AT HS)
     Route: 048
     Dates: start: 20111101, end: 20120118
  2. PLAVIX [Concomitant]
     Dosage: UNK
  3. ZETIA [Concomitant]
     Dosage: UNK
  4. NORVASC [Concomitant]
     Dosage: 10 MG, 1X/DAY
  5. LIPITOR [Suspect]
     Dosage: 80 MG, 1X/DAY
     Route: 048
     Dates: start: 20111101, end: 20120118
  6. PROTONIX [Concomitant]
     Dosage: UNK

REACTIONS (2)
  - RASH PRURITIC [None]
  - HYPERSENSITIVITY [None]
